FAERS Safety Report 18975174 (Version 1)
Quarter: 2021Q1

REPORT INFORMATION
  Report Type: Report from Study
  Country: US (occurrence: US)
  Receive Date: 20210305
  Receipt Date: 20210305
  Transmission Date: 20210420
  Serious: No
  Sender: FDA-Public Use
  Company Number: US-BIOVITRUM-2021US2252

PATIENT
  Age: 55 Year
  Sex: Male

DRUGS (1)
  1. KINERET [Suspect]
     Active Substance: ANAKINRA
     Indication: STILL^S DISEASE
     Route: 058
     Dates: start: 20190415

REACTIONS (6)
  - Depression [Unknown]
  - Emotional disorder [Unknown]
  - Off label use [Unknown]
  - Haemoglobin increased [Unknown]
  - Hypotension [Unknown]
  - Asthenia [Unknown]

NARRATIVE: CASE EVENT DATE: 20190415
